FAERS Safety Report 12605717 (Version 1)
Quarter: 2016Q3

REPORT INFORMATION
  Report Type: Spontaneous
  Country: US (occurrence: None)
  Receive Date: 20160728
  Receipt Date: 20160728
  Transmission Date: 20161109
  Serious: Yes (Hospitalization)
  Sender: FDA-Public Use
  Company Number: None

PATIENT
  Age: 41 Year
  Sex: Male
  Weight: 141 kg

DRUGS (3)
  1. XIGDUO XR [Suspect]
     Active Substance: DAPAGLIFLOZIN PROPANEDIOL\METFORMIN HYDROCHLORIDE
     Indication: TYPE 2 DIABETES MELLITUS
  2. SALINE [Concomitant]
     Active Substance: SODIUM CHLORIDE
  3. INSULIN DRIP [Concomitant]

REACTIONS (4)
  - Fatigue [None]
  - Diabetic ketoacidosis [None]
  - Abdominal pain [None]
  - Asthenia [None]

NARRATIVE: CASE EVENT DATE: 20160726
